FAERS Safety Report 7020522-7 (Version None)
Quarter: 2010Q3

REPORT INFORMATION
  Report Type: 
  Country: None (occurrence: None)
  Receive Date: 20100929
  Receipt Date: 20100727
  Transmission Date: 20110219
  Serious: No
  Sender: FDA-Public Use
  Company Number: A0863066A

PATIENT
  Age: 51 Year
  Sex: Female

DRUGS (14)
  1. LAMICTAL [Suspect]
     Indication: PARTIAL SEIZURES
     Dosage: 200MG PER DAY
     Route: 048
     Dates: start: 20100505
  2. VIMPAT [Concomitant]
  3. NEXIUM [Concomitant]
  4. FAMOTIDINE [Concomitant]
  5. LIBRAX [Concomitant]
  6. PRAVASTATIN [Concomitant]
  7. COLESTID [Concomitant]
  8. REGLAN [Concomitant]
  9. XANAX [Concomitant]
  10. CARAFATE [Concomitant]
  11. PLAVIX [Concomitant]
  12. FOLIC ACID [Concomitant]
  13. PROPRANOLOL [Concomitant]
  14. SUCRALFATE [Concomitant]

REACTIONS (12)
  - ADVERSE EVENT [None]
  - ALOPECIA [None]
  - CONFUSIONAL STATE [None]
  - ERYTHEMA [None]
  - NAIL BED INFECTION [None]
  - NAIL DISCOLOURATION [None]
  - OEDEMA PERIPHERAL [None]
  - PAIN IN EXTREMITY [None]
  - PALMAR ERYTHEMA [None]
  - RASH ERYTHEMATOUS [None]
  - SKIN EXFOLIATION [None]
  - STARING [None]
